FAERS Safety Report 10486104 (Version 1)
Quarter: 2014Q4

REPORT INFORMATION
  Report Type: Report from Study
  Country: US (occurrence: US)
  Receive Date: 20141001
  Receipt Date: 20141001
  Transmission Date: 20150528
  Serious: Yes (Other)
  Sender: FDA-Public Use
  Company Number: US-ROCHE-1466874

PATIENT
  Age: 6 Year
  Sex: Male
  Weight: 28.1 kg

DRUGS (7)
  1. NUTROPIN AQ [Suspect]
     Active Substance: SOMATROPIN
     Indication: HYPOPITUITARISM
     Route: 058
  2. NUTROPIN AQ [Suspect]
     Active Substance: SOMATROPIN
     Route: 058
  3. NUTROPIN AQ [Suspect]
     Active Substance: SOMATROPIN
     Route: 058
  4. SYNTHROID [Concomitant]
     Active Substance: LEVOTHYROXINE SODIUM
     Route: 048
  5. ROCALTROL [Suspect]
     Active Substance: CALCITRIOL
     Indication: PRODUCT USED FOR UNKNOWN INDICATION
     Route: 048
  6. CORTEF [Concomitant]
     Active Substance: HYDROCORTISONE
     Route: 048
  7. FLORINEF ACETATE [Concomitant]
     Active Substance: FLUDROCORTISONE ACETATE
     Route: 048

REACTIONS (8)
  - Scar [Unknown]
  - Upper respiratory tract infection [Unknown]
  - Insulin-like growth factor decreased [Unknown]
  - Visual impairment [Unknown]
  - Haematoma [Recovered/Resolved]
  - Growth retardation [Unknown]
  - Otitis media [Unknown]
  - Drug dose omission [Unknown]

NARRATIVE: CASE EVENT DATE: 201402
